FAERS Safety Report 13145288 (Version 1)
Quarter: 2017Q1

REPORT INFORMATION
  Report Type: Report from Study
  Country: US (occurrence: US)
  Receive Date: 20170124
  Receipt Date: 20170124
  Transmission Date: 20170428
  Serious: Yes (Death)
  Sender: FDA-Public Use
  Company Number: US-CONCORDIA PHARMACEUTICALS INC.-GSH201701-000593

PATIENT
  Age: 50 Year
  Sex: Male

DRUGS (19)
  1. OLANZAPINE. [Suspect]
     Active Substance: OLANZAPINE
     Route: 048
  2. AMFETAMINE [Suspect]
     Active Substance: AMPHETAMINE
     Route: 048
  3. LORAZEPAM. [Suspect]
     Active Substance: LORAZEPAM
     Route: 048
  4. CHLORPROMAZINE. [Suspect]
     Active Substance: CHLORPROMAZINE
     Route: 048
  5. GLIPIZIDE. [Suspect]
     Active Substance: GLIPIZIDE
     Route: 048
  6. TEMAZEPAM. [Suspect]
     Active Substance: TEMAZEPAM
     Route: 048
  7. CLONAZEPAM. [Suspect]
     Active Substance: CLONAZEPAM
     Route: 048
  8. HALOPERIDOL. [Suspect]
     Active Substance: HALOPERIDOL
     Route: 048
  9. DOXEPIN [Suspect]
     Active Substance: DOXEPIN
     Route: 048
  10. GLIMEPIRIDE. [Suspect]
     Active Substance: GLIMEPIRIDE
     Route: 048
  11. LISINOPRIL. [Suspect]
     Active Substance: LISINOPRIL
     Route: 048
  12. BUPROPION. [Suspect]
     Active Substance: BUPROPION
     Route: 048
  13. DULOXETINE. [Suspect]
     Active Substance: DULOXETINE
     Route: 048
  14. CYCLOBENZAPRINE [Suspect]
     Active Substance: CYCLOBENZAPRINE
     Route: 048
  15. FLUOXETINE [Suspect]
     Active Substance: FLUOXETINE HYDROCHLORIDE
     Route: 048
  16. CLONIDINE. [Suspect]
     Active Substance: CLONIDINE
     Route: 048
  17. QUETIAPINE. [Suspect]
     Active Substance: QUETIAPINE
     Route: 048
  18. METHYLPHENIDATE. [Suspect]
     Active Substance: METHYLPHENIDATE
     Route: 048
  19. VENLAFAXINE [Suspect]
     Active Substance: VENLAFAXINE HYDROCHLORIDE
     Route: 048

REACTIONS (2)
  - Completed suicide [Fatal]
  - Toxicity to various agents [Fatal]
